FAERS Safety Report 9468523 (Version 1)
Quarter: 2013Q3

REPORT INFORMATION
  Report Type: Spontaneous
  Country: DE (occurrence: DE)
  Receive Date: 20130821
  Receipt Date: 20130821
  Transmission Date: 20140515
  Serious: Yes (Other)
  Sender: FDA-Public Use
  Company Number: DE-TEVA-425361GER

PATIENT
  Age: 32 Year
  Sex: Female
  Weight: 69 kg

DRUGS (4)
  1. LORATADINE [Suspect]
     Indication: URTICARIA
     Dosage: 10 MILLIGRAM DAILY;
     Route: 048
  2. TELFAST 180 [Concomitant]
     Indication: URTICARIA
     Dosage: 168 MILLIGRAM DAILY;
     Route: 048
  3. FOLSAEURE [Concomitant]
     Indication: PROPHYLAXIS OF NEURAL TUBE DEFECT
     Dosage: 400 MICROGRAM DAILY;
     Route: 048
  4. ALLERGOSPASMIN [Concomitant]
     Indication: ASTHMA
     Route: 055

REACTIONS (1)
  - Abortion spontaneous [Recovered/Resolved]
